FAERS Safety Report 11795778 (Version 1)
Quarter: 2015Q4

REPORT INFORMATION
  Report Type: Spontaneous
  Country: US (occurrence: US)
  Receive Date: 20151202
  Receipt Date: 20151202
  Transmission Date: 20160305
  Serious: No
  Sender: FDA-Public Use
  Company Number: US-BAUSCH-BL-2015-020435

PATIENT
  Age: 18 Year
  Sex: Female
  Weight: 56.3 kg

DRUGS (1)
  1. ACANYA [Suspect]
     Active Substance: BENZOYL PEROXIDE\CLINDAMYCIN PHOSPHATE
     Indication: ACNE
     Dosage: APPLY TO AFFECTED AREA DAILY
     Route: 061

REACTIONS (2)
  - Acne [Not Recovered/Not Resolved]
  - Drug ineffective [Not Recovered/Not Resolved]

NARRATIVE: CASE EVENT DATE: 201507
